FAERS Safety Report 8570603-1 (Version None)
Quarter: 2012Q3

REPORT INFORMATION
  Report Type: 
  Country: None (occurrence: None)
  Receive Date: 20120804
  Receipt Date: 20120724
  Transmission Date: 20120928
  Serious: No
  Sender: FDA-Public Use
  Company Number: US-009507513-1207USA010832

PATIENT

DRUGS (2)
  1. REBETOL [Suspect]
     Indication: HEPATITIS C
     Dosage: UNK
     Dates: start: 20120616
  2. PEG-INTRON [Suspect]
     Indication: HEPATITIS C
     Dosage: UNK
     Dates: start: 20120616

REACTIONS (12)
  - INFLUENZA [None]
  - CONSTIPATION [None]
  - HEADACHE [None]
  - STOMATITIS [None]
  - MUSCULOSKELETAL PAIN [None]
  - NECK PAIN [None]
  - FEELING ABNORMAL [None]
  - WEIGHT DECREASED [None]
  - ASTHENIA [None]
  - BACK PAIN [None]
  - NAUSEA [None]
  - DECREASED APPETITE [None]
